FAERS Safety Report 18000467 (Version 1)
Quarter: 2020Q3

REPORT INFORMATION
  Report Type: Spontaneous
  Country: FR (occurrence: FR)
  Receive Date: 20200709
  Receipt Date: 20200709
  Transmission Date: 20201103
  Serious: Yes (Death, Other)
  Sender: FDA-Public Use
  Company Number: FR-ACCORD-189388

PATIENT
  Age: 64 Year
  Sex: Male
  Weight: 53.35 kg

DRUGS (9)
  1. XATRAL [Suspect]
     Active Substance: ALFUZOSIN
     Indication: PRODUCT USED FOR UNKNOWN INDICATION
     Route: 048
  2. CEFTRIAXONE MYLAN [Suspect]
     Active Substance: CEFTRIAXONE
     Indication: INFECTION
     Dosage: INTRA CORPUS CAVERNOSUM
     Route: 011
     Dates: start: 20200323, end: 20200326
  3. PANTOPRAZOLE [Suspect]
     Active Substance: PANTOPRAZOLE
     Indication: PRODUCT USED FOR UNKNOWN INDICATION
     Route: 048
  4. ATORVASTATINE ARROW [Suspect]
     Active Substance: ATORVASTATIN
     Indication: PRODUCT USED FOR UNKNOWN INDICATION
     Route: 048
  5. FUROSEMIDE. [Suspect]
     Active Substance: FUROSEMIDE
     Indication: PRODUCT USED FOR UNKNOWN INDICATION
     Route: 042
     Dates: start: 20200321, end: 20200423
  6. APIXABAN [Suspect]
     Active Substance: APIXABAN
     Indication: PROPHYLAXIS
     Route: 048
     Dates: end: 20200414
  7. KARDEGIC [Suspect]
     Active Substance: ASPIRIN DL-LYSINE
     Indication: PRODUCT USED FOR UNKNOWN INDICATION
     Route: 048
  8. DIFFU K [Suspect]
     Active Substance: POTASSIUM CHLORIDE
     Indication: PRODUCT USED FOR UNKNOWN INDICATION
     Route: 048
     Dates: start: 20200321, end: 202005
  9. AMIODARONE [Suspect]
     Active Substance: AMIODARONE
     Indication: ATRIAL FLUTTER
     Route: 048
     Dates: end: 20200331

REACTIONS (2)
  - Interstitial lung disease [Fatal]
  - Hyperthyroidism [Not Recovered/Not Resolved]

NARRATIVE: CASE EVENT DATE: 20200323
